FAERS Safety Report 8972336 (Version 2)
Quarter: 2013Q2

REPORT INFORMATION
  Report Type: Spontaneous
  Country: CA (occurrence: CA)
  Receive Date: 20121218
  Receipt Date: 20130412
  Transmission Date: 20140414
  Serious: Yes (Death)
  Sender: FDA-Public Use
  Company Number: CA-ABBOTT-12P-028-1022199-00

PATIENT
  Age: 64 Year
  Sex: Male

DRUGS (8)
  1. BIAXIN [Suspect]
     Indication: BRONCHITIS
  2. BENYLIN [Suspect]
     Indication: PRODUCT USED FOR UNKNOWN INDICATION
  3. DEXTROMETHORPHAN [Interacting]
     Indication: PRODUCT USED FOR UNKNOWN INDICATION
  4. NYQUIL [Suspect]
     Indication: PRODUCT USED FOR UNKNOWN INDICATION
  5. PROZAC [Interacting]
     Indication: BIPOLAR DISORDER
  6. RESTORIL [Concomitant]
     Indication: PRODUCT USED FOR UNKNOWN INDICATION
  7. WELLBUTRIN [Concomitant]
     Indication: PRODUCT USED FOR UNKNOWN INDICATION
  8. ZYPREXA [Concomitant]
     Indication: PRODUCT USED FOR UNKNOWN INDICATION

REACTIONS (3)
  - Accidental poisoning [Fatal]
  - Drug interaction [Fatal]
  - Serotonin syndrome [Fatal]
